FAERS Safety Report 11823632 (Version 2)
Quarter: 2016Q1

REPORT INFORMATION
  Report Type: Report from Study
  Country: US (occurrence: US)
  Receive Date: 20151210
  Receipt Date: 20160122
  Transmission Date: 20160525
  Serious: Yes (Other)
  Sender: FDA-Public Use
  Company Number: US-BAYER-2015-480087

PATIENT
  Age: 66 Year
  Sex: Male

DRUGS (1)
  1. NEXAVAR [Suspect]
     Active Substance: SORAFENIB
     Indication: ACUTE MYELOID LEUKAEMIA
     Dosage: 400 MG, BID
     Route: 048
     Dates: start: 20150814, end: 20151111

REACTIONS (5)
  - Drug ineffective [None]
  - Therapy cessation [None]
  - Off label use [None]
  - Transfusion [Not Recovered/Not Resolved]
  - Platelet transfusion [Not Recovered/Not Resolved]

NARRATIVE: CASE EVENT DATE: 2015
